FAERS Safety Report 8504015 (Version 4)
Quarter: 2012Q4

REPORT INFORMATION
  Report Type: Report from Study
  Country: SG (occurrence: SG)
  Receive Date: 20120411
  Receipt Date: 20121010
  Transmission Date: 20130627
  Serious: Yes (Hospitalization)
  Sender: FDA-Public Use
  Company Number: SG-JNJFOC-20120401959

PATIENT
  Age: 70 Year
  Sex: Female
  Weight: 55.7 kg

DRUGS (18)
  1. STELARA [Suspect]
     Indication: PSORIASIS
     Route: 058
     Dates: start: 20120223
  2. STELARA [Suspect]
     Indication: PSORIASIS
     Route: 058
     Dates: start: 20111220
  3. ACITRETIN [Concomitant]
     Indication: PSORIASIS
     Dates: start: 20111101
  4. ACITRETIN [Concomitant]
     Indication: PSORIASIS
     Dates: start: 20111220, end: 20120403
  5. ACYCLOVIR [Concomitant]
     Indication: HERPES SIMPLEX
     Dates: start: 20111220
  6. ACYCLOVIR [Concomitant]
     Indication: HERPES SIMPLEX
     Dates: start: 20111227
  7. ACYCLOVIR CREAM [Concomitant]
     Indication: HERPES SIMPLEX
     Dates: start: 20111220
  8. CETIRIZINE [Concomitant]
     Indication: PRURITUS
     Dates: start: 20120420
  9. CETIRIZINE [Concomitant]
     Indication: PRURITUS
     Dates: start: 20111220
  10. HYDROXYZINE [Concomitant]
     Indication: PRURITUS
     Dates: start: 20111220
  11. SENNA [Concomitant]
     Indication: CONSTIPATION
     Dates: start: 20111220
  12. FAMOTIDINE [Concomitant]
     Indication: GASTROINTESTINAL DISORDER THERAPY
     Dates: start: 20111220
  13. ALL OTHER THERAPEUTIC PRODUCT [Concomitant]
     Indication: PSORIASIS
     Dates: start: 20111220
  14. BETAMETHASONE CREAM [Concomitant]
     Indication: PSORIASIS
     Dates: start: 20111220
  15. ALL OTHER THERAPEUTIC PRODUCT [Concomitant]
     Indication: PSORIASIS
     Dates: start: 20111220
  16. COAL TAR [Concomitant]
     Indication: PSORIASIS
     Dates: start: 20111210
  17. COAL TAR [Concomitant]
     Indication: PSORIASIS
     Dates: start: 20111220
  18. BETAMETHASONE SCALP APPLICATION [Concomitant]
     Dates: start: 20111220

REACTIONS (1)
  - Pustular psoriasis [Recovered/Resolved]
